FAERS Safety Report 12312000 (Version 1)
Quarter: 2016Q2

REPORT INFORMATION
  Report Type: Other
  Country: None (occurrence: US)
  Receive Date: 20160427
  Receipt Date: 20160427
  Transmission Date: 20160815
  Serious: Yes (Other)
  Sender: FDA-Public Use
  Company Number: US-GUTHY-RENKER LLC-1051121

PATIENT
  Age: 53 Year
  Sex: Female

DRUGS (2)
  1. INHALERS FOR ASTHMA, MEDICATIONS FOR NEBULIZER [Concomitant]
     Active Substance: UNSPECIFIED INGREDIENT
  2. MEANINGFUL BEAUTY CINDY CRAWFORD ANTIOXIDANT SPF 20 UVA/UVB [Suspect]
     Active Substance: AVOBENZONE\OCTINOXATE\OCTISALATE\OXYBENZONE
     Indication: PROPHYLAXIS AGAINST SOLAR RADIATION
     Route: 061
     Dates: start: 20151216, end: 20160315

REACTIONS (4)
  - Asthma [None]
  - Rash [None]
  - Anaphylactic reaction [Recovered/Resolved]
  - Condition aggravated [None]

NARRATIVE: CASE EVENT DATE: 20160315
